FAERS Safety Report 10395708 (Version 2)
Quarter: 2014Q3

REPORT INFORMATION
  Report Type: Spontaneous
  Country: US (occurrence: None)
  Receive Date: 20140818
  Receipt Date: 20140905
  Transmission Date: 20150326
  Serious: Yes (Other)
  Sender: FDA-Public Use
  Company Number: 2013-US-004770

PATIENT
  Age: 62 Year
  Sex: Female

DRUGS (3)
  1. VIIBRYD [Concomitant]
     Active Substance: VILAZODONE HYDROCHLORIDE
  2. XYREM [Suspect]
     Active Substance: SODIUM OXYBATE
     Indication: NARCOLEPSY
     Route: 048
     Dates: start: 201309, end: 201401
  3. TRANXENE T-TAB [Suspect]
     Active Substance: CLORAZEPATE DIPOTASSIUM
     Indication: ANXIETY

REACTIONS (7)
  - Foot operation [None]
  - Peripheral venous disease [None]
  - Postoperative wound complication [None]
  - Somnolence [None]
  - Impaired healing [None]
  - Pain in extremity [None]
  - Anxiety [None]

NARRATIVE: CASE EVENT DATE: 2013
